FAERS Safety Report 11682254 (Version 1)
Quarter: 2015Q4

REPORT INFORMATION
  Report Type: Spontaneous
  Country: FR (occurrence: FR)
  Receive Date: 20151029
  Receipt Date: 20151029
  Transmission Date: 20160304
  Serious: Yes (Death)
  Sender: FDA-Public Use
  Company Number: FR-009507513-1510FRA013929

PATIENT
  Age: 95 Year
  Sex: Female

DRUGS (9)
  1. DOMPERIDONE [Suspect]
     Active Substance: DOMPERIDONE
     Dosage: UNK
  2. NITROGLYCERIN. [Suspect]
     Active Substance: NITROGLYCERIN
     Dosage: UNK
  3. FERROUS SULFATE [Suspect]
     Active Substance: FERROUS SULFATE\FERROUS SULFATE, DRIED
     Dosage: UNK
     Route: 048
  4. MORPHINE [Suspect]
     Active Substance: MORPHINE
     Dosage: 60 MG, QD
     Route: 048
  5. CALCIFEDIOL [Suspect]
     Active Substance: CALCIFEDIOL
     Dosage: UNK
     Route: 048
  6. POLYETHYLENE GLYCOL 3350. [Suspect]
     Active Substance: POLYETHYLENE GLYCOL 3350
     Indication: PRODUCT USED FOR UNKNOWN INDICATION
     Dosage: UNK
  7. PRILOSEC [Suspect]
     Active Substance: OMEPRAZOLE MAGNESIUM
     Dosage: UNK
  8. INNOHEP [Suspect]
     Active Substance: TINZAPARIN SODIUM
     Dosage: UNK
  9. CALCIUM (UNSPECIFIED) [Suspect]
     Active Substance: CALCIUM
     Dosage: UNK

REACTIONS (6)
  - Left ventricular failure [Fatal]
  - Laryngeal oedema [Fatal]
  - Acute kidney injury [Fatal]
  - Vascular purpura [Fatal]
  - Culture urine positive [Fatal]
  - Oedema [Fatal]
